FAERS Safety Report 8805355 (Version 1)
Quarter: 2012Q4

REPORT INFORMATION
  Report Type: 
  Country: US (occurrence: US)
  Receive Date: 20120924
  Receipt Date: 20120924
  Transmission Date: 20130627
  Serious: No
  Sender: FDA-Public Use
  Company Number: US-PFIZER INC-2012235019

PATIENT
  Age: 82 Year
  Sex: Female
  Weight: 72.56 kg

DRUGS (2)
  1. LYRICA [Suspect]
     Indication: BACK PAIN
     Dosage: 50 mg, daily
     Dates: start: 20120919
  2. NUCYNTA [Interacting]
     Indication: BACK PAIN
     Dosage: 100 mg, as needed
     Dates: start: 201201

REACTIONS (6)
  - Drug interaction [Unknown]
  - Dizziness [Recovering/Resolving]
  - Nausea [Recovering/Resolving]
  - Fall [Unknown]
  - Fatigue [Unknown]
  - Feeling abnormal [Unknown]
